FAERS Safety Report 24576725 (Version 1)
Quarter: 2024Q4

REPORT INFORMATION
  Report Type: Spontaneous
  Country: US (occurrence: US)
  Receive Date: 20241104
  Receipt Date: 20241104
  Transmission Date: 20250114
  Serious: Yes (Hospitalization)
  Sender: PFIZER
  Company Number: US-PFIZER INC-PV202400141370

PATIENT
  Age: 63 Year
  Sex: Male
  Weight: 156.92 kg

DRUGS (2)
  1. LORBRENA [Suspect]
     Active Substance: LORLATINIB
     Indication: Lung adenocarcinoma stage IV
     Dosage: UNK
     Route: 048
     Dates: start: 20240909
  2. LORBRENA [Suspect]
     Active Substance: LORLATINIB
     Dosage: TAKE 3 TABLETS DAILY
     Route: 048

REACTIONS (4)
  - Sepsis [Unknown]
  - Pain [Unknown]
  - Neoplasm progression [Unknown]
  - Oedema [Unknown]

NARRATIVE: CASE EVENT DATE: 20240101
